FAERS Safety Report 14738584 (Version 1)
Quarter: 2018Q2

REPORT INFORMATION
  Report Type: Report from Study
  Country: JP (occurrence: JP)
  Receive Date: 20180409
  Receipt Date: 20180409
  Transmission Date: 20180711
  Serious: Yes (Death, Other)
  Sender: FDA-Public Use
  Company Number: PHHY2010JP097899

PATIENT
  Age: 65 Year
  Sex: Female
  Weight: 42 kg

DRUGS (12)
  1. PREDNISOLONE. [Concomitant]
     Active Substance: PREDNISOLONE
     Indication: INTERSTITIAL LUNG DISEASE
     Route: 048
     Dates: end: 20091225
  2. SPIRONOLACTONE. [Concomitant]
     Active Substance: SPIRONOLACTONE
     Indication: HYPOKALAEMIA
     Route: 048
     Dates: end: 20091225
  3. ALUSA [Concomitant]
     Active Substance: ALDIOXA
     Indication: PEPTIC ULCER
     Route: 048
     Dates: end: 20091225
  4. VOLTAREN [Concomitant]
     Active Substance: DICLOFENAC SODIUM
     Indication: PAIN
     Route: 048
     Dates: end: 20091225
  5. XELODA [Concomitant]
     Active Substance: CAPECITABINE
     Indication: BREAST CANCER
     Dosage: 1200 MG, BID
     Route: 048
     Dates: start: 20091106, end: 20091119
  6. PYDOXAL [Concomitant]
     Active Substance: PYRIDOXAL
     Indication: PROPHYLAXIS
     Route: 048
     Dates: start: 20091106, end: 20091225
  7. OXYCONTIN [Concomitant]
     Active Substance: OXYCODONE HYDROCHLORIDE
     Indication: PAIN
     Route: 048
     Dates: end: 20091225
  8. TYKERB [Suspect]
     Active Substance: LAPATINIB DITOSYLATE
     Indication: BREAST CANCER
     Dosage: 1250 MG, QD
     Route: 048
     Dates: start: 20091106, end: 20091217
  9. NEUOMIL [Concomitant]
     Active Substance: MAPROTILINE HYDROCHLORIDE
     Indication: PAIN
     Route: 048
     Dates: end: 20091225
  10. TAIPROTON [Concomitant]
     Active Substance: LANSOPRAZOLE
     Indication: PEPTIC ULCER
     Route: 048
     Dates: end: 20091225
  11. SLOW-K [Concomitant]
     Active Substance: POTASSIUM CHLORIDE
     Indication: HYPOKALAEMIA
     Route: 048
     Dates: end: 20091225
  12. XELODA [Concomitant]
     Active Substance: CAPECITABINE
     Dosage: 900 MG, BID
     Route: 048
     Dates: start: 20091127, end: 20091210

REACTIONS (9)
  - Cardiac arrest [Unknown]
  - Erythema [Unknown]
  - Staphylococcal sepsis [Fatal]
  - Blood bilirubin increased [Recovered/Resolved]
  - Disseminated intravascular coagulation [Fatal]
  - Blood pressure decreased [Unknown]
  - Musculoskeletal pain [Unknown]
  - Platelet count decreased [Recovered/Resolved]
  - Malaise [Unknown]

NARRATIVE: CASE EVENT DATE: 20091118
